FAERS Safety Report 11419413 (Version 1)
Quarter: 2015Q3

REPORT INFORMATION
  Report Type: Report from Study
  Country: BR (occurrence: BR)
  Receive Date: 20150826
  Receipt Date: 20150826
  Transmission Date: 20151125
  Serious: Yes (Hospitalization)
  Sender: FDA-Public Use
  Company Number: BR-BRISTOL-MYERS SQUIBB COMPANY-21638291

PATIENT
  Age: 59 Year
  Sex: Male
  Weight: 76 kg

DRUGS (1)
  1. CETUXIMAB [Suspect]
     Active Substance: CETUXIMAB
     Indication: COLON CANCER
     Dosage: UNK UNK, INTERMITTENT
     Route: 065
     Dates: start: 201410, end: 201506

REACTIONS (8)
  - Skin exfoliation [Unknown]
  - Surgery [Unknown]
  - Oral herpes [Recovering/Resolving]
  - Erythema [Unknown]
  - Dry mouth [Unknown]
  - Tongue movement disturbance [Unknown]
  - Acne [Recovering/Resolving]
  - Dry skin [Not Recovered/Not Resolved]

NARRATIVE: CASE EVENT DATE: 201410
